FAERS Safety Report 8853156 (Version 6)
Quarter: 2013Q4

REPORT INFORMATION
  Report Type: Spontaneous
  Country: US (occurrence: US)
  Receive Date: 20121022
  Receipt Date: 20131008
  Transmission Date: 20140711
  Serious: Yes (Hospitalization, Disabling, Other)
  Sender: FDA-Public Use
  Company Number: US-009507513-1210USA008682

PATIENT
  Sex: Male
  Weight: 114.1 kg

DRUGS (3)
  1. FOSAMAX [Suspect]
     Indication: OSTEOPOROSIS
     Dosage: 5 MG, QD
     Route: 048
     Dates: start: 199902, end: 20060315
  2. FOSAMAX [Suspect]
     Dosage: 70 MG, QW
     Route: 048
     Dates: start: 20060315, end: 20090615
  3. FOSAMAX PLUS D [Suspect]
     Indication: OSTEOPOROSIS
     Dosage: 70 MG, UNK
     Route: 048
     Dates: start: 200701, end: 201011

REACTIONS (35)
  - Osteonecrosis [Unknown]
  - Hip arthroplasty [Recovering/Resolving]
  - Osteoarthritis [Unknown]
  - Femur fracture [Not Recovered/Not Resolved]
  - Femur fracture [Not Recovered/Not Resolved]
  - Radius fracture [Recovering/Resolving]
  - Open reduction of fracture [Unknown]
  - Osteoporosis [Not Recovered/Not Resolved]
  - Stress fracture [Not Recovered/Not Resolved]
  - Low turnover osteopathy [Not Recovered/Not Resolved]
  - Surgery [Not Recovered/Not Resolved]
  - Musculoskeletal disorder [Not Recovered/Not Resolved]
  - Surgery [Unknown]
  - Rotator cuff repair [Unknown]
  - Prostatic operation [Unknown]
  - Rotator cuff syndrome [Unknown]
  - Peptic ulcer [Unknown]
  - Asthma [Unknown]
  - Herpes zoster [Unknown]
  - Fall [Unknown]
  - Appendicectomy [Unknown]
  - Contusion [Unknown]
  - Contusion [Unknown]
  - Rib fracture [Unknown]
  - Sleep apnoea syndrome [Unknown]
  - Tinnitus [Unknown]
  - Bronchitis [Unknown]
  - Meralgia paraesthetica [Unknown]
  - Muscular weakness [Unknown]
  - Dry skin [Unknown]
  - Osteopenia [Unknown]
  - Asthenia [Unknown]
  - Myalgia [Unknown]
  - Pruritus [Unknown]
  - Rash [Unknown]
